FAERS Safety Report 6659527-4 (Version None)
Quarter: 2010Q1

REPORT INFORMATION
  Report Type: 
  Country: None (occurrence: None)
  Receive Date: 20100330
  Receipt Date: 20100316
  Transmission Date: 20100710
  Serious: Yes (Hospitalization)
  Sender: FDA-Public Use
  Company Number: AU-MYLANLABS-2010S1004455

PATIENT
  Age: 76 Year
  Sex: Female
  Weight: 60 kg

DRUGS (4)
  1. ENDEP [Suspect]
     Indication: POST HERPETIC NEURALGIA
     Route: 048
     Dates: start: 20090303, end: 20090421
  2. LYRICA [Suspect]
     Indication: POST HERPETIC NEURALGIA
     Route: 048
     Dates: start: 20090303, end: 20090408
  3. LYRICA [Suspect]
     Route: 048
     Dates: start: 20090409, end: 20090421
  4. PREDNISOLONE [Concomitant]
     Indication: POST HERPETIC NEURALGIA
     Dates: start: 20090303, end: 20090317

REACTIONS (1)
  - IIIRD NERVE PARALYSIS [None]
